FAERS Safety Report 4422377-3 (Version None)
Quarter: 2004Q3

REPORT INFORMATION
  Report Type: 
  Country: None (occurrence: None)
  Receive Date: 20040810
  Receipt Date: 20040726
  Transmission Date: 20050211
  Serious: Yes (Hospitalization)
  Sender: FDA-Public Use
  Company Number: JP-JNJFOC-20040201527

PATIENT
  Sex: Male
  Weight: 55 kg

DRUGS (10)
  1. REMICADE [Suspect]
     Route: 041
     Dates: start: 20030621
  2. REMICADE [Suspect]
     Indication: ANAL FISTULA
     Route: 041
     Dates: start: 20030621
  3. REMICADE [Suspect]
     Indication: CROHN'S DISEASE
     Route: 041
     Dates: start: 20030621
  4. PREDONINE [Concomitant]
     Route: 049
  5. PENTASA [Concomitant]
     Indication: CROHN'S DISEASE
     Dosage: DOSE/DAY REPORTED AS ^12 T^
     Route: 049
  6. FLAGYL [Concomitant]
     Route: 049
  7. GASTER D [Concomitant]
     Route: 049
  8. HALCION [Concomitant]
     Route: 049
  9. MOBIC [Concomitant]
     Route: 049
  10. ENTERAL NUTRITION [Concomitant]

REACTIONS (8)
  - ALANINE AMINOTRANSFERASE INCREASED [None]
  - ASPARTATE AMINOTRANSFERASE INCREASED [None]
  - BLOOD ALKALINE PHOSPHATASE INCREASED [None]
  - CANDIDA PNEUMONIA [None]
  - HEADACHE [None]
  - INTESTINAL OBSTRUCTION [None]
  - LEUKOCYTE ALKALINE PHOSPHATASE INCREASED [None]
  - WHITE BLOOD CELL COUNT DECREASED [None]
